FAERS Safety Report 8379167-9 (Version None)
Quarter: 2012Q1

REPORT INFORMATION
  Report Type: 
  Country: None (occurrence: None)
  Receive Date: 20120323
  Receipt Date: 20110609
  Transmission Date: 20120608
  Serious: Yes (Disabling)
  Sender: FDA-Public Use
  Company Number: 163-21880-11032171

PATIENT
  Age: 82 Year
  Sex: Female
  Weight: 50.3493 kg

DRUGS (9)
  1. LOVENOX [Concomitant]
  2. VELCADE [Concomitant]
  3. ATENOLOL [Concomitant]
  4. ACTONEL [Concomitant]
  5. LEVOTHYROXINE SODIUM [Concomitant]
  6. TAMOXIFEN CITRATE [Concomitant]
  7. REVLIMID [Suspect]
     Indication: MULTIPLE MYELOMA
     Dosage: SEE IMAGE
     Route: 048
     Dates: start: 20110121, end: 20110301
  8. REVLIMID [Suspect]
     Indication: MULTIPLE MYELOMA
     Dosage: SEE IMAGE
     Route: 048
     Dates: start: 20110301, end: 20110401
  9. REVLIMID [Suspect]
     Indication: MULTIPLE MYELOMA
     Dosage: SEE IMAGE
     Route: 048
     Dates: start: 20110401

REACTIONS (1)
  - DIARRHOEA [None]
